FAERS Safety Report 21481487 (Version 5)
Quarter: 2023Q1

REPORT INFORMATION
  Report Type: Report from Study
  Country: US (occurrence: US)
  Receive Date: 20221019
  Receipt Date: 20230329
  Transmission Date: 20230417
  Serious: No
  Sender: FDA-Public Use
  Company Number: US-NOVARTISTESTPH-NVSC2022US235887

PATIENT
  Sex: Male

DRUGS (2)
  1. ENTRESTO [Suspect]
     Active Substance: SACUBITRIL\VALSARTAN
     Indication: Product used for unknown indication
     Dosage: 1 DOSAGE FORM, BID (24 MG)
     Route: 065
     Dates: start: 202104
  2. ENTRESTO [Suspect]
     Active Substance: SACUBITRIL\VALSARTAN
     Dosage: 24 MG, BID (24/26MG)
     Route: 065

REACTIONS (8)
  - Weight decreased [Recovering/Resolving]
  - Thirst [Unknown]
  - Dehydration [Unknown]
  - Weight increased [Unknown]
  - Micturition urgency [Unknown]
  - Feeling abnormal [Unknown]
  - Fatigue [Unknown]
  - Product dose omission in error [Unknown]
